FAERS Safety Report 6725640-6 (Version None)
Quarter: 2010Q2

REPORT INFORMATION
  Report Type: 
  Country: None (occurrence: None)
  Receive Date: 20100514
  Receipt Date: 20100503
  Transmission Date: 20101027
  Serious: Yes (Hospitalization)
  Sender: FDA-Public Use
  Company Number: US-JNJFOC-20100501927

PATIENT
  Age: 15 Year
  Sex: Female

DRUGS (10)
  1. CHILDREN'S TYLENOL BUBBLEGUM BURST [Suspect]
     Route: 048
  2. CHILDREN'S TYLENOL BUBBLEGUM BURST [Suspect]
     Indication: PAIN
     Route: 048
  3. CHILDREN'S MOTRIN [Suspect]
     Route: 048
  4. CHILDREN'S MOTRIN [Suspect]
     Indication: PAIN
     Route: 048
  5. BENADRYL [Suspect]
     Indication: DRUG USE FOR UNKNOWN INDICATION
  6. ZYRTEC [Suspect]
     Indication: DRUG USE FOR UNKNOWN INDICATION
  7. CHILDREN'S MOTRIN [Suspect]
     Route: 048
  8. CHILDREN'S MOTRIN [Suspect]
     Indication: PAIN
     Route: 048
  9. TYLENOL (CAPLET) [Suspect]
  10. TYLENOL (CAPLET) [Suspect]
     Indication: PAIN

REACTIONS (3)
  - LETHARGY [None]
  - PRODUCT QUALITY ISSUE [None]
  - VOMITING [None]
